FAERS Safety Report 10149169 (Version 2)
Quarter: 2022Q2

REPORT INFORMATION
  Report Type: Spontaneous
  Country: GB (occurrence: None)
  Receive Date: 20140502
  Receipt Date: 20220609
  Transmission Date: 20220721
  Serious: Yes (Other)
  Sender: FDA-Public Use
  Company Number: GB-ROCHE-1388410

PATIENT
  Age: 72 Year
  Sex: Male
  Weight: 50 kg

DRUGS (11)
  1. TAMIFLU [Suspect]
     Active Substance: OSELTAMIVIR PHOSPHATE
     Indication: Antiviral prophylaxis
     Route: 048
     Dates: start: 20140404, end: 20140409
  2. TAMIFLU [Suspect]
     Active Substance: OSELTAMIVIR PHOSPHATE
     Indication: Ill-defined disorder
     Dosage: RECOMMENDED IM DOSE
     Route: 051
     Dates: start: 19891029, end: 19891029
  3. CALCIUM CARBONATE\CHOLECALCIFEROL [Concomitant]
     Active Substance: CALCIUM CARBONATE\CHOLECALCIFEROL
  4. AMOXICILLIN [Concomitant]
     Active Substance: AMOXICILLIN
  5. COCODAMOL [Concomitant]
     Active Substance: ACETAMINOPHEN\CODEINE PHOSPHATE
  6. ENOXAPARIN SODIUM [Concomitant]
     Active Substance: ENOXAPARIN SODIUM
     Dates: start: 20140401
  7. LACTULOSE [Concomitant]
     Active Substance: LACTULOSE
  8. LEVETIRACETAM [Concomitant]
     Active Substance: LEVETIRACETAM
  9. LIDOCAINE [Concomitant]
     Active Substance: LIDOCAINE
  10. MORPHINE SULFATE [Concomitant]
     Active Substance: MORPHINE SULFATE
  11. AMLODIPINE BESYLATE [Concomitant]
     Active Substance: AMLODIPINE BESYLATE

REACTIONS (8)
  - Diarrhoea [Not Recovered/Not Resolved]
  - Duodenal ulcer [Unknown]
  - Gastrointestinal haemorrhage [Recovering/Resolving]
  - Faeces discoloured [Unknown]
  - Tachycardia [Unknown]
  - Tachypnoea [Unknown]
  - Vomiting [Unknown]
  - Fatigue [Not Recovered/Not Resolved]

NARRATIVE: CASE EVENT DATE: 20140408
